FAERS Safety Report 10947037 (Version 3)
Quarter: 2015Q2

REPORT INFORMATION
  Report Type: Spontaneous
  Country: US (occurrence: US)
  Receive Date: 20150323
  Receipt Date: 20150430
  Transmission Date: 20150821
  Serious: Yes (Death, Hospitalization, Other)
  Sender: FDA-Public Use
  Company Number: US-RECKITT BENCKISER PHARMACEUTICAL, INC-RB-077257-2015

PATIENT
  Age: 2 Year
  Sex: Male
  Weight: 14.51 kg

DRUGS (1)
  1. BUPRENORPHINE [Suspect]
     Active Substance: BUPRENORPHINE
     Indication: PRODUCT USED FOR UNKNOWN INDICATION
     Dosage: UNK
     Route: 065
     Dates: start: 2014

REACTIONS (11)
  - Accidental exposure to product by child [Fatal]
  - Brain oedema [Recovered/Resolved]
  - Skin abrasion [Recovered/Resolved]
  - Diarrhoea [Recovered/Resolved]
  - Toxicity to various agents [Fatal]
  - Cardio-respiratory arrest [Fatal]
  - Intracranial pressure increased [Recovered/Resolved]
  - Contusion [Recovered/Resolved]
  - Hypoxic-ischaemic encephalopathy [Fatal]
  - Loss of consciousness [Fatal]
  - Vomiting [Recovered/Resolved]

NARRATIVE: CASE EVENT DATE: 2014
